FAERS Safety Report 14801272 (Version 1)
Quarter: 2018Q2

REPORT INFORMATION
  Report Type: Spontaneous
  Country: US (occurrence: US)
  Receive Date: 20180424
  Receipt Date: 20180424
  Transmission Date: 20180711
  Serious: No
  Sender: FDA-Public Use
  Company Number: US-BAYER-2018-077625

PATIENT
  Age: 22 Month
  Sex: Female

DRUGS (1)
  1. ALEVE PM [Suspect]
     Active Substance: DIPHENHYDRAMINE HYDROCHLORIDE\NAPROXEN SODIUM
     Dosage: 2 DF, ONCE
     Route: 065
     Dates: start: 20180419, end: 20180419

REACTIONS (4)
  - Somnolence [Unknown]
  - Accidental exposure to product by child [Unknown]
  - Lip discolouration [Unknown]
  - Irritability [Unknown]

NARRATIVE: CASE EVENT DATE: 20180419
